FAERS Safety Report 18853341 (Version 7)
Quarter: 2021Q4

REPORT INFORMATION
  Report Type: Spontaneous
  Country: US (occurrence: US)
  Receive Date: 20210205
  Receipt Date: 20211206
  Transmission Date: 20220303
  Serious: Yes (Hospitalization, Other)
  Sender: FDA-Public Use
  Company Number: US-PFIZER INC-2021091900

PATIENT
  Age: 61 Year
  Sex: Female

DRUGS (1)
  1. XELJANZ XR [Suspect]
     Active Substance: TOFACITINIB CITRATE
     Indication: Rheumatoid arthritis
     Dosage: 11 MG, 1X/DAY
     Route: 048
     Dates: start: 202010, end: 202109

REACTIONS (14)
  - Blood potassium decreased [Unknown]
  - Enzyme level abnormal [Unknown]
  - Chest pain [Unknown]
  - Encephalitis [Unknown]
  - Oesophageal ulcer [Unknown]
  - Rheumatoid arthritis [Unknown]
  - Suicidal ideation [Unknown]
  - Emotional distress [Unknown]
  - Pain [Unknown]
  - Swelling [Unknown]
  - Peripheral swelling [Unknown]
  - Dyspnoea [Unknown]
  - Loss of personal independence in daily activities [Unknown]
  - Therapeutic product effect incomplete [Unknown]

NARRATIVE: CASE EVENT DATE: 20210101
